FAERS Safety Report 17516390 (Version 2)
Quarter: 2020Q3

REPORT INFORMATION
  Report Type: Spontaneous
  Country: US (occurrence: US)
  Receive Date: 20200309
  Receipt Date: 20200819
  Transmission Date: 20201102
  Serious: No
  Sender: FDA-Public Use
  Company Number: US-PFIZER INC-2020100361

PATIENT
  Age: 75 Year
  Sex: Female

DRUGS (1)
  1. EUCRISA [Suspect]
     Active Substance: CRISABOROLE
     Indication: PRURITUS
     Dosage: UNK, 2X/DAY (APPLY TO AFFECTED AREAS TWICE DAILY)

REACTIONS (4)
  - Off label use [Unknown]
  - Condition aggravated [Unknown]
  - Food allergy [Unknown]
  - Drug ineffective for unapproved indication [Unknown]
